FAERS Safety Report 8866518 (Version 1)
Quarter: 2012Q4

REPORT INFORMATION
  Report Type: 
  Country: US (occurrence: US)
  Receive Date: 20121025
  Receipt Date: 20121025
  Transmission Date: 20130627
  Serious: Yes (Hospitalization)
  Sender: FDA-Public Use
  Company Number: US-NOVEN-12US005538

PATIENT
  Age: 43 Year
  Sex: Male

DRUGS (4)
  1. LITHIUM CARBONATE [Suspect]
     Indication: SCHIZOAFFECTIVE DISORDER
     Dosage: 300 mg, UNK
     Route: 065
     Dates: start: 2011
  2. LITHIUM CARBONATE [Suspect]
     Dosage: UNK
     Route: 065
     Dates: start: 1986, end: 1997
  3. PALIPERIDONE [Concomitant]
     Indication: PRODUCT USED FOR UNKNOWN INDICATION
     Dosage: 3 mg, UNK
     Route: 065
  4. HALOPERIDOL [Concomitant]
     Indication: PRODUCT USED FOR UNKNOWN INDICATION
     Dosage: 5 mg, UNK
     Route: 065

REACTIONS (3)
  - Hyponatraemia [Unknown]
  - Polydipsia psychogenic [Unknown]
  - Nephrogenic diabetes insipidus [Unknown]
